FAERS Safety Report 17697641 (Version 1)
Quarter: 2020Q2

REPORT INFORMATION
  Report Type: Spontaneous
  Country: US (occurrence: US)
  Receive Date: 20200423
  Receipt Date: 20200423
  Transmission Date: 20200714
  Serious: No
  Sender: FDA-Public Use
  Company Number: US-MYLANLABS-2020M1038017

PATIENT
  Sex: Female
  Weight: 52 kg

DRUGS (1)
  1. ESTRADIOL VAGINAL CREAM USP [Suspect]
     Active Substance: ESTRADIOL
     Indication: VAGINAL DISCHARGE
     Dosage: UNK
     Route: 067

REACTIONS (5)
  - Application site pain [Not Recovered/Not Resolved]
  - Drug hypersensitivity [Recovering/Resolving]
  - Inflammatory pain [Recovering/Resolving]
  - Product use in unapproved indication [Recovering/Resolving]
  - Off label use [Recovering/Resolving]
